FAERS Safety Report 15291311 (Version 1)
Quarter: 2018Q3

REPORT INFORMATION
  Report Type: Spontaneous
  Country: IT (occurrence: IT)
  Receive Date: 20180817
  Receipt Date: 20180817
  Transmission Date: 20181010
  Serious: Yes (Other)
  Sender: FDA-Public Use
  Company Number: IT-TEVA-2018-IT-944518

PATIENT
  Age: 30 Year
  Sex: Male
  Weight: 57 kg

DRUGS (1)
  1. AMOXICILLINA ACIDO CLAVULANICO TEVA [Suspect]
     Active Substance: AMOXICILLIN\CLAVULANIC ACID
     Indication: TOOTH EXTRACTION
     Dosage: 2 GRAM DAILY;
     Route: 048
     Dates: start: 20180717, end: 20180722

REACTIONS (1)
  - Rash maculo-papular [Recovered/Resolved]

NARRATIVE: CASE EVENT DATE: 20180725
